FAERS Safety Report 4277689-3 (Version None)
Quarter: 2004Q1

REPORT INFORMATION
  Report Type: 
  Country: None (occurrence: None)
  Receive Date: 20040121
  Receipt Date: 20040109
  Transmission Date: 20041129
  Serious: Yes (Other)
  Sender: FDA-Public Use
  Company Number: DSA_60381_2004

PATIENT
  Sex: Male

DRUGS (1)
  1. MYSOLINE [Suspect]
     Dates: start: 19780101

REACTIONS (1)
  - DUPUYTREN'S CONTRACTURE [None]
